FAERS Safety Report 8571128-X (Version None)
Quarter: 2012Q3

REPORT INFORMATION
  Report Type: 
  Country: None (occurrence: None)
  Receive Date: 20120806
  Receipt Date: 20120730
  Transmission Date: 20120928
  Serious: No
  Sender: FDA-Public Use
  Company Number: US-PFIZER INC-2012184671

PATIENT
  Age: 80 Year
  Sex: Male
  Weight: 89.796 kg

DRUGS (5)
  1. PRIMIDONE [Concomitant]
     Indication: ESSENTIAL TREMOR
     Dosage: UNK
  2. AVASTIN [Concomitant]
     Indication: AGE-RELATED MACULAR DEGENERATION
     Dosage: UNK
  3. AVASTIN [Concomitant]
  4. TOVIAZ [Suspect]
     Indication: HYPERTONIC BLADDER
     Dosage: UNK, 1X/DAY
     Route: 048
     Dates: start: 20120712, end: 20120726
  5. METOPROLOL [Concomitant]
     Dosage: 50 MG, 2X/DAY

REACTIONS (6)
  - EYE DISCHARGE [None]
  - METAMORPHOPSIA [None]
  - VISION BLURRED [None]
  - OCULAR DISCOMFORT [None]
  - DRY EYE [None]
  - PLATELET COUNT DECREASED [None]
